FAERS Safety Report 4700286-X (Version None)
Quarter: 2005Q2

REPORT INFORMATION
  Report Type: 
  Country: None (occurrence: None)
  Receive Date: 20050624
  Receipt Date: 20050624
  Transmission Date: 20051028
  Serious: Yes (Hospitalization)
  Sender: FDA-Public Use
  Company Number: None

PATIENT
  Age: 72 Year
  Sex: Male
  Weight: 88.6782 kg

DRUGS (4)
  1. AVASTIN [Suspect]
     Indication: RECTAL CANCER
     Dosage: 460 MG IV Q 2 WEEKS
     Route: 042
     Dates: start: 20050525
  2. AVASTIN [Suspect]
     Indication: RECTAL CANCER
     Dosage: 460 MG IV Q 2 WEEKS
     Route: 042
     Dates: start: 20050608
  3. OXALIPLATIN 180 MG (SANOFI-AVENTIS) [Suspect]
     Indication: RECTAL CANCER
     Dosage: 180 MG Q 2 WEELS IV
     Route: 042
     Dates: start: 20050525
  4. OXALIPLATIN 180 MG (SANOFI-AVENTIS) [Suspect]
     Indication: RECTAL CANCER
     Dosage: 180 MG Q 2 WEELS IV
     Route: 042
     Dates: start: 20050608

REACTIONS (12)
  - ASTHENIA [None]
  - BLOOD CREATININE INCREASED [None]
  - BLOOD UREA INCREASED [None]
  - CARDIAC DISORDER [None]
  - CARDIO-RESPIRATORY ARREST [None]
  - FATIGUE [None]
  - NAUSEA [None]
  - ORAL INTAKE REDUCED [None]
  - PROTEINURIA [None]
  - RESPIRATORY DISTRESS [None]
  - SMALL INTESTINAL OBSTRUCTION [None]
  - VOMITING [None]
